FAERS Safety Report 4731680-9 (Version None)
Quarter: 2005Q3

REPORT INFORMATION
  Report Type: 
  Country: None (occurrence: None)
  Receive Date: 20050725
  Receipt Date: 20040714
  Transmission Date: 20060218
  Serious: Yes (Other)
  Sender: FDA-Public Use
  Company Number: WAES 0203USA02018

PATIENT
  Age: 45 Year
  Sex: Female
  Weight: 96.1626 kg

DRUGS (11)
  1. VIOXX [Suspect]
     Dosage: UNK/UNK/PO
     Route: 048
     Dates: start: 20000310, end: 20000324
  2. CARDURA [Concomitant]
  3. FLONASE [Concomitant]
  4. HYDRODIURIL [Concomitant]
  5. K-DUR 10 [Concomitant]
  6. LASIX [Concomitant]
  7. LO/OVRAL [Concomitant]
  8. TIAZAC [Concomitant]
  9. ZIAC [Concomitant]
  10. PREDNISONE [Concomitant]
  11. PREDNISONE [Concomitant]

REACTIONS (18)
  - ADVERSE DRUG REACTION [None]
  - ARTHRITIS [None]
  - BREAST HYPERPLASIA [None]
  - DIABETES MELLITUS [None]
  - DIABETIC NEPHROPATHY [None]
  - DIZZINESS [None]
  - DYSPNOEA EXERTIONAL [None]
  - GOUTY ARTHRITIS [None]
  - HYPERKERATOSIS [None]
  - NEPHRITIS INTERSTITIAL [None]
  - NEUROPATHY PERIPHERAL [None]
  - RENAL FAILURE [None]
  - TENDONITIS [None]
  - TINNITUS [None]
  - TOE DEFORMITY [None]
  - UPPER RESPIRATORY TRACT INFECTION [None]
  - VERTIGO [None]
  - VISUAL ACUITY REDUCED [None]
